FAERS Safety Report 9813703 (Version 4)
Quarter: 2014Q1

REPORT INFORMATION
  Report Type: Report from Study
  Country: CH (occurrence: CH)
  Receive Date: 20140113
  Receipt Date: 20140210
  Transmission Date: 20141002
  Serious: Yes (Life-Threatening, Hospitalization)
  Sender: FDA-Public Use
  Company Number: CH-BRISTOL-MYERS SQUIBB COMPANY-19990761

PATIENT
  Age: 67 Year
  Sex: Female

DRUGS (4)
  1. CETUXIMAB [Suspect]
     Indication: NON-SMALL CELL LUNG CANCER
     Dosage: RECENT DOSE 450MG ON 30-DEC-2013
     Route: 042
     Dates: start: 20130930
  2. CARBOPLATIN [Suspect]
     Indication: NON-SMALL CELL LUNG CANCER
     Dosage: 1DF: 6AUC, UNIT: NOS,RECENT DOSE ON 15NOV13
     Route: 042
     Dates: start: 20131022
  3. CISPLATIN [Suspect]
     Indication: NON-SMALL CELL LUNG CANCER
     Dosage: RECENT DOSE ON 30SEP13,90MG
     Route: 042
     Dates: start: 20130930, end: 20131001
  4. TAXOTERE [Suspect]
     Indication: NON-SMALL CELL LUNG CANCER
     Dosage: RECENT DOSE 150MG ON 15NOV13
     Route: 042
     Dates: start: 20130930

REACTIONS (1)
  - Septic shock [Recovered/Resolved]
